FAERS Safety Report 21249583 (Version 1)
Quarter: 2022Q3

REPORT INFORMATION
  Report Type: Report from Study
  Country: ES (occurrence: ES)
  Receive Date: 20220824
  Receipt Date: 20220824
  Transmission Date: 20221027
  Serious: Yes (Other)
  Sender: FDA-Public Use
  Company Number: None

PATIENT
  Age: 43 Year
  Sex: Male

DRUGS (1)
  1. HUMIRA [Suspect]
     Active Substance: ADALIMUMAB
     Indication: Ankylosing spondylitis
     Dosage: 2 PRE-FILLED SYRINGES OF 0.8 ML
     Route: 058
     Dates: start: 20180510, end: 20210603

REACTIONS (1)
  - Hepatic steatosis [Recovered/Resolved]

NARRATIVE: CASE EVENT DATE: 20210520
